FAERS Safety Report 7747757-X (Version None)
Quarter: 2011Q3

REPORT INFORMATION
  Report Type: 
  Country: None (occurrence: None)
  Receive Date: 20110913
  Receipt Date: 20110831
  Transmission Date: 20111222
  Serious: Yes (Other)
  Sender: FDA-Public Use
  Company Number: US-ACTELION-A-US2010-41656

PATIENT

DRUGS (4)
  1. VIAGRA [Concomitant]
  2. TRACLEER [Suspect]
     Indication: PULMONARY HYPERTENSION
     Dosage: 125 MG, BID
     Route: 048
     Dates: start: 20090801, end: 20100901
  3. TRACLEER [Suspect]
     Dosage: UNK
     Route: 048
  4. LASIX [Concomitant]

REACTIONS (4)
  - ABORTION INDUCED [None]
  - PREGNANCY [None]
  - FATIGUE [None]
  - DYSPNOEA [None]
